FAERS Safety Report 5421575-X (Version None)
Quarter: 2007Q3

REPORT INFORMATION
  Report Type: 
  Country: None (occurrence: None)
  Receive Date: 20070817
  Receipt Date: 20070803
  Transmission Date: 20080115
  Serious: Yes (Other)
  Sender: FDA-Public Use
  Company Number: B0482929A

PATIENT
  Age: 28 Year
  Sex: Female

DRUGS (1)
  1. NICOTINE PATCH (GENERIC) (NICOTINE) [Suspect]
     Indication: DRUG WITHDRAWAL MAINTENANCE THERAPY
     Dosage: TRANSDERMAL
     Route: 062

REACTIONS (2)
  - CEREBROVASCULAR SPASM [None]
  - ISCHAEMIC STROKE [None]
